FAERS Safety Report 12497829 (Version 2)
Quarter: 2016Q3

REPORT INFORMATION
  Report Type: Report from Study
  Country: DE (occurrence: DE)
  Receive Date: 20160625
  Receipt Date: 20160726
  Transmission Date: 20161109
  Serious: Yes (Hospitalization)
  Sender: FDA-Public Use
  Company Number: DE-GILEAD-2016-0220003

PATIENT
  Age: 63 Year
  Sex: Female
  Weight: 68 kg

DRUGS (5)
  1. RIBAVIRIN. [Concomitant]
     Active Substance: RIBAVIRIN
     Indication: CHRONIC HEPATITIS C
     Dosage: 200 MG, QID
     Route: 048
     Dates: start: 20150318, end: 20150608
  2. CONCOR [Concomitant]
     Active Substance: BISOPROLOL FUMARATE
  3. OMEPRAZOL                          /00661201/ [Concomitant]
     Active Substance: OMEPRAZOLE
  4. LEDIPASVIR/SOFOSBUVIR [Suspect]
     Active Substance: LEDIPASVIR\SOFOSBUVIR
     Indication: CHRONIC HEPATITIS C
     Dosage: 1 DF, QD
     Route: 048
     Dates: start: 20150318, end: 20150608
  5. TRIAMTEREN [Concomitant]
     Active Substance: TRIAMTERENE

REACTIONS (1)
  - Tooth extraction [Recovered/Resolved]

NARRATIVE: CASE EVENT DATE: 20150527
